FAERS Safety Report 5466692-3 (Version None)
Quarter: 2007Q3

REPORT INFORMATION
  Report Type: 
  Country: None (occurrence: None)
  Receive Date: 20070925
  Receipt Date: 20070920
  Transmission Date: 20080115
  Serious: Yes (Death)
  Sender: FDA-Public Use
  Company Number: US-ASTRAZENECA-2006UW12322

PATIENT
  Age: 45 Year
  Sex: Female
  Weight: 83.6 kg

DRUGS (2)
  1. SEROQUEL [Suspect]
     Route: 048
     Dates: end: 20060101
  2. ZYPREXA [Suspect]

REACTIONS (2)
  - ALCOHOLISM [None]
  - DIABETES MELLITUS [None]
